FAERS Safety Report 7582410-7 (Version None)
Quarter: 2011Q2

REPORT INFORMATION
  Report Type: 
  Country: None (occurrence: None)
  Receive Date: 20110630
  Receipt Date: 20110622
  Transmission Date: 20111010
  Serious: Yes (Other)
  Sender: FDA-Public Use
  Company Number: US-GENZYME-THYM-1002528

PATIENT
  Sex: Female
  Weight: 32 kg

DRUGS (7)
  1. BENADRYL [Concomitant]
     Indication: PREMEDICATION
  2. TYLENOL-500 [Concomitant]
     Indication: PREMEDICATION
  3. EPINEPHRINE [Concomitant]
     Indication: PRODUCT USED FOR UNKNOWN INDICATION
     Dosage: UNK
     Dates: start: 20110611
  4. CORTICOSTEROID NOS [Concomitant]
     Indication: PREMEDICATION
     Dosage: 1.5 MG/KG, UNK
  5. MYCOPHENOLATE MEFETIL [Concomitant]
     Indication: PRODUCT USED FOR UNKNOWN INDICATION
  6. METHYLPREDNISOLONE [Concomitant]
     Indication: PRODUCT USED FOR UNKNOWN INDICATION
  7. THYMOGLOBULIN [Suspect]
     Indication: HEART TRANSPLANT
     Dosage: 50 MG, QD
     Route: 042
     Dates: start: 20110611, end: 20110611

REACTIONS (3)
  - LIP SWELLING [None]
  - T-LYMPHOCYTE COUNT DECREASED [None]
  - SWOLLEN TONGUE [None]
